FAERS Safety Report 11196825 (Version 3)
Quarter: 2015Q3

REPORT INFORMATION
  Report Type: Report from Study
  Country: US (occurrence: US)
  Receive Date: 20150617
  Receipt Date: 20150824
  Transmission Date: 20151125
  Serious: Yes (Other)
  Sender: FDA-Public Use
  Company Number: US-GILEAD-2015-0157411

PATIENT
  Age: 75 Year
  Sex: Female

DRUGS (4)
  1. RANOLAZINE [Suspect]
     Active Substance: RANOLAZINE
     Dosage: 500 MG, UNK
     Route: 048
  2. RANOLAZINE [Suspect]
     Active Substance: RANOLAZINE
     Dosage: 1000 MG, UNK
     Route: 048
  3. RANOLAZINE [Suspect]
     Active Substance: RANOLAZINE
     Indication: ANGINA PECTORIS
     Dosage: 1000 MG, BID
     Route: 048
  4. RANOLAZINE [Suspect]
     Active Substance: RANOLAZINE
     Dosage: 2000 MG IN THE MORNING 500 MG IN THE EVENING
     Route: 048

REACTIONS (5)
  - Angina pectoris [Unknown]
  - Overdose [Unknown]
  - Cognitive disorder [Unknown]
  - Vertigo [Unknown]
  - Treatment noncompliance [Unknown]
